FAERS Safety Report 4695769-5 (Version None)
Quarter: 2005Q2

REPORT INFORMATION
  Report Type: 
  Country: None (occurrence: None)
  Receive Date: 20050620
  Receipt Date: 20050620
  Transmission Date: 20051028
  Serious: Yes (Death)
  Sender: FDA-Public Use
  Company Number: None

PATIENT
  Age: 62 Year
  Sex: Male
  Weight: 151 kg

DRUGS (2)
  1. LOVENOX [Suspect]
     Dosage: 1MG/KG  Q12  SQ
     Route: 058
  2. COUMADIN [Suspect]
     Dosage: 2.5 MG QD  PO
     Route: 048

REACTIONS (7)
  - DEPRESSED LEVEL OF CONSCIOUSNESS [None]
  - FALL [None]
  - HAEMOGLOBIN DECREASED [None]
  - MENINGITIS [None]
  - PROCEDURAL HYPOTENSION [None]
  - RESPIRATORY DISORDER [None]
  - RETROPERITONEAL HAEMORRHAGE [None]
